FAERS Safety Report 11324331 (Version 3)
Quarter: 2015Q3

REPORT INFORMATION
  Report Type: Spontaneous
  Country: US (occurrence: US)
  Receive Date: 20150730
  Receipt Date: 20150910
  Transmission Date: 20151125
  Serious: Yes (Hospitalization)
  Sender: FDA-Public Use
  Company Number: US-ACTELION-A-NJ2015-121817

PATIENT
  Age: 62 Year
  Sex: Female

DRUGS (4)
  1. VENTAVIS [Suspect]
     Active Substance: ILOPROST
     Dosage: 5 MCG, 6-7X DAILY
     Route: 055
  2. RIOCIGUAT [Concomitant]
     Active Substance: RIOCIGUAT
  3. VENTAVIS [Suspect]
     Active Substance: ILOPROST
     Indication: PULMONARY HYPERTENSION
     Dosage: 5 MCG, 6-9X DAILY
     Route: 055
     Dates: start: 20150312
  4. OPSUMIT [Suspect]
     Active Substance: MACITENTAN
     Indication: PULMONARY HYPERTENSION
     Dosage: 10 MG, QD
     Route: 048

REACTIONS (10)
  - Respiratory distress [Unknown]
  - Pulmonary arterial pressure increased [Unknown]
  - Respiratory tract inflammation [Unknown]
  - Scleroderma [Recovering/Resolving]
  - Pneumonia [Unknown]
  - PO2 decreased [Unknown]
  - Sepsis [Recovered/Resolved]
  - Dyspnoea [Unknown]
  - Hypoxia [Unknown]
  - Pneumonitis [Recovered/Resolved]
